FAERS Safety Report 9346323 (Version 2)
Quarter: 2013Q3

REPORT INFORMATION
  Report Type: Spontaneous
  Country: FR (occurrence: FR)
  Receive Date: 20130613
  Receipt Date: 20130712
  Transmission Date: 20140515
  Serious: Yes (Hospitalization)
  Sender: FDA-Public Use
  Company Number: FR-ROCHE-1236090

PATIENT
  Age: 65 Year
  Sex: Female

DRUGS (2)
  1. ZELBORAF [Suspect]
     Indication: MALIGNANT MELANOMA
     Route: 048
     Dates: start: 20130221
  2. ZELBORAF [Suspect]
     Route: 048
     Dates: end: 20130507

REACTIONS (2)
  - Photosensitivity reaction [Recovered/Resolved]
  - Kaposi^s varicelliform eruption [Recovered/Resolved with Sequelae]
